FAERS Safety Report 12566994 (Version 1)
Quarter: 2016Q3

REPORT INFORMATION
  Report Type: Report from Study
  Country: LB (occurrence: LB)
  Receive Date: 20160718
  Receipt Date: 20160718
  Transmission Date: 20161109
  Serious: Yes (Death, Hospitalization)
  Sender: FDA-Public Use
  Company Number: PHHY2016LB096031

PATIENT
  Age: 47 Year
  Sex: Male

DRUGS (1)
  1. EXJADE [Suspect]
     Active Substance: DEFERASIROX
     Indication: APLASIA
     Dosage: 1500 MG, QD (3 TABLETS OF 500MG)
     Route: 048

REACTIONS (4)
  - Pulmonary oedema [Unknown]
  - Cardiomyopathy [Unknown]
  - Myocardial infarction [Fatal]
  - Lung neoplasm malignant [Unknown]

NARRATIVE: CASE EVENT DATE: 201606
